FAERS Safety Report 25263804 (Version 1)
Quarter: 2025Q2

REPORT INFORMATION
  Report Type: Spontaneous
  Country: US (occurrence: None)
  Receive Date: 20250501
  Receipt Date: 20250501
  Transmission Date: 20250716
  Serious: Yes (Other)
  Sender: FDA-CTU
  Company Number: None

PATIENT
  Age: 34 Year
  Sex: Female
  Weight: 92.25 kg

DRUGS (1)
  1. NALTREXONE [Suspect]
     Active Substance: NALTREXONE
     Indication: Drug use disorder
     Dosage: 1 TBLET DAILY ORAL
     Route: 048

REACTIONS (8)
  - Somnolence [None]
  - Crying [None]
  - Depression [None]
  - Depressed mood [None]
  - Drug withdrawal syndrome [None]
  - Anxiety [None]
  - Panic attack [None]
  - Asthenia [None]

NARRATIVE: CASE EVENT DATE: 20250501
